FAERS Safety Report 14301186 (Version 2)
Quarter: 2017Q4

REPORT INFORMATION
  Report Type: Report from Study
  Country: US (occurrence: US)
  Receive Date: 20171219
  Receipt Date: 20171229
  Transmission Date: 20180321
  Serious: Yes (Life-Threatening, Hospitalization, Other)
  Sender: FDA-Public Use
  Company Number: US-BRISTOL-MYERS SQUIBB COMPANY-BMS-2017-112373

PATIENT
  Age: 33 Year
  Sex: Female

DRUGS (5)
  1. TENOFOVIR DISOPROXIL FUMARATE + EMTRICITABINE [Suspect]
     Active Substance: EMTRICITABINE\TENOFOVIR DISOPROXIL FUMARATE
     Indication: ANTIRETROVIRAL THERAPY
     Dosage: 1 DF, QD
     Route: 048
     Dates: start: 20170323
  2. ATAZANAVIR SULFATE. [Suspect]
     Active Substance: ATAZANAVIR SULFATE
     Indication: ANTIRETROVIRAL THERAPY
     Dosage: 300 MG, QD
     Route: 048
     Dates: start: 20170323
  3. ZIDOVUDINE. [Suspect]
     Active Substance: ZIDOVUDINE
     Indication: PRODUCT USED FOR UNKNOWN INDICATION
     Dosage: 1 DF, QD
     Route: 042
     Dates: start: 20170328, end: 20170328
  4. RITONAVIR. [Suspect]
     Active Substance: RITONAVIR
     Indication: ANTIRETROVIRAL THERAPY
     Dosage: 100 MG, QD
     Route: 048
     Dates: start: 20170323
  5. ZIDOVUDINE. [Suspect]
     Active Substance: ZIDOVUDINE
     Indication: ANTIRETROVIRAL THERAPY
     Dosage: 1 DF, QD
     Route: 042
     Dates: start: 20170328

REACTIONS (3)
  - Maternal exposure during pregnancy [Recovered/Resolved]
  - Pneumocystis jirovecii pneumonia [Unknown]
  - Premature delivery [Unknown]

NARRATIVE: CASE EVENT DATE: 20170328
